FAERS Safety Report 13234001 (Version 1)
Quarter: 2017Q1

REPORT INFORMATION
  Report Type: Spontaneous
  Country: US (occurrence: US)
  Receive Date: 20170214
  Receipt Date: 20170214
  Transmission Date: 20170428
  Serious: Yes (Disabling)
  Sender: FDA-Public Use
  Company Number: None

PATIENT
  Age: 51 Year
  Sex: Female
  Weight: 75.6 kg

DRUGS (6)
  1. METFORMIN [Concomitant]
     Active Substance: METFORMIN HYDROCHLORIDE
  2. ATORVASTATIN [Suspect]
     Active Substance: ATORVASTATIN
     Indication: BLOOD TRIGLYCERIDES INCREASED
     Dosage: ?          QUANTITY:15 TABLET(S);OTHER FREQUENCY:EVERY OTHER DAY;?
     Route: 048
     Dates: start: 20161109, end: 20170111
  3. ENALAPRIL [Concomitant]
     Active Substance: ENALAPRIL
  4. METOPROLOL. [Concomitant]
     Active Substance: METOPROLOL
  5. GLIMEPIRIDE. [Concomitant]
     Active Substance: GLIMEPIRIDE
  6. ASPIRIN. [Concomitant]
     Active Substance: ASPIRIN

REACTIONS (4)
  - Intentional product use issue [None]
  - Muscle spasms [None]
  - Muscle rupture [None]
  - Muscle contracture [None]

NARRATIVE: CASE EVENT DATE: 20170111
